FAERS Safety Report 9307022 (Version 1)
Quarter: 2013Q2

REPORT INFORMATION
  Report Type: Spontaneous
  Country: US (occurrence: US)
  Receive Date: 20130523
  Receipt Date: 20130523
  Transmission Date: 20140414
  Serious: No
  Sender: FDA-Public Use
  Company Number: US-009507513-1305USA011572

PATIENT
  Age: 35 Year
  Sex: Female
  Weight: 104.31 kg

DRUGS (2)
  1. NUVARING [Suspect]
     Indication: CONTRACEPTION
     Dosage: CONTINOUSLY
     Route: 067
     Dates: start: 200305
  2. NUVARING [Suspect]
     Dosage: UNK
     Dates: start: 20130513

REACTIONS (3)
  - Metrorrhagia [Unknown]
  - Menorrhagia [Unknown]
  - Incorrect drug administration duration [Unknown]
